FAERS Safety Report 17030392 (Version 1)
Quarter: 2019Q4

REPORT INFORMATION
  Report Type: Spontaneous
  Country: US (occurrence: US)
  Receive Date: 20191114
  Receipt Date: 20191114
  Transmission Date: 20200122
  Serious: No
  Sender: FDA-Public Use
  Company Number: US-ALLERGAN-1913490US

PATIENT
  Age: 60 Year
  Sex: Female

DRUGS (2)
  1. COMBIGAN [Suspect]
     Active Substance: BRIMONIDINE TARTRATE\TIMOLOL MALEATE
     Indication: INTRAOCULAR PRESSURE INCREASED
     Dosage: 2 GTT
     Route: 047
     Dates: start: 201903
  2. TIMOLOL MALEATE. [Concomitant]
     Active Substance: TIMOLOL MALEATE
     Indication: INTRAOCULAR PRESSURE INCREASED
     Dosage: UNK
     Route: 047
     Dates: start: 2014

REACTIONS (2)
  - Somnolence [Recovered/Resolved]
  - Miosis [Not Recovered/Not Resolved]

NARRATIVE: CASE EVENT DATE: 201903
